FAERS Safety Report 21733639 (Version 1)
Quarter: 2022Q4

REPORT INFORMATION
  Report Type: Spontaneous
  Country: NL (occurrence: NL)
  Receive Date: 20221215
  Receipt Date: 20221215
  Transmission Date: 20230113
  Serious: Yes (Other)
  Sender: FDA-Public Use
  Company Number: NL-009507513-2212NLD004708

PATIENT
  Age: 33 Year
  Sex: Male

DRUGS (1)
  1. ELBASVIR\GRAZOPREVIR [Suspect]
     Active Substance: ELBASVIR\GRAZOPREVIR
     Indication: Hepatitis C
     Dosage: UNK
     Route: 048

REACTIONS (2)
  - Pathogen resistance [Unknown]
  - Treatment failure [Unknown]
